FAERS Safety Report 23969371 (Version 2)
Quarter: 2024Q3

REPORT INFORMATION
  Report Type: Spontaneous
  Country: US (occurrence: US)
  Receive Date: 20240612
  Receipt Date: 20240715
  Transmission Date: 20241017
  Serious: Yes (Hospitalization)
  Sender: TEVA
  Company Number: US-TEVA-VS-3207002

PATIENT
  Age: 68 Year
  Sex: Female

DRUGS (2)
  1. HYDROCORTISONE [Suspect]
     Active Substance: HYDROCORTISONE\HYDROCORTISONE ACETATE
     Indication: Secondary adrenocortical insufficiency
     Route: 065
  2. IPILIMUMAB [Suspect]
     Active Substance: IPILIMUMAB
     Indication: Metastatic malignant melanoma
     Route: 065

REACTIONS (7)
  - Hypophysitis [Recovering/Resolving]
  - Drug ineffective [Unknown]
  - Fall [Recovering/Resolving]
  - Orthostatic hypotension [Recovering/Resolving]
  - Hyponatraemia [Recovering/Resolving]
  - Secondary adrenocortical insufficiency [Recovering/Resolving]
  - Primary adrenal insufficiency [Recovering/Resolving]
